FAERS Safety Report 17907493 (Version 1)
Quarter: 2020Q2

REPORT INFORMATION
  Report Type: Report from Study
  Country: NL (occurrence: NL)
  Receive Date: 20200617
  Receipt Date: 20200617
  Transmission Date: 20200714
  Serious: Yes (Hospitalization, Other)
  Sender: FDA-Public Use
  Company Number: NL-MYLANLABS-2020M1055963

PATIENT
  Age: 63 Year
  Sex: Male

DRUGS (4)
  1. ASCIMINIB [Suspect]
     Active Substance: ASCIMINIB
     Dosage: 400 MILLIGRAM, QD
     Route: 065
     Dates: start: 20160926
  2. DICLOFENAC [Suspect]
     Active Substance: DICLOFENAC
     Indication: PAIN
     Dosage: 50 MG
     Route: 065
     Dates: start: 20191010, end: 20191025
  3. ASCIMINIB [Suspect]
     Active Substance: ASCIMINIB
     Indication: PRODUCT USED FOR UNKNOWN INDICATION
     Dosage: 400 MG, QD
     Route: 065
     Dates: start: 20191025
  4. LOSARTAN. [Suspect]
     Active Substance: LOSARTAN
     Indication: HYPERTENSION
     Dosage: 50 MG
     Route: 065
     Dates: start: 20190814, end: 20191025

REACTIONS (6)
  - Renal failure [Recovered/Resolved]
  - Nausea [Unknown]
  - Vomiting [Unknown]
  - Drug intolerance [Unknown]
  - Dehydration [Unknown]
  - Vascular injury [Unknown]

NARRATIVE: CASE EVENT DATE: 20191025
